FAERS Safety Report 9507492 (Version 2)
Quarter: 2014Q1

REPORT INFORMATION
  Report Type: Report from Study
  Country: LB (occurrence: LB)
  Receive Date: 20130909
  Receipt Date: 20140115
  Transmission Date: 20141002
  Serious: Yes (Death, Hospitalization)
  Sender: FDA-Public Use
  Company Number: LB-SANOFI-AVENTIS-2013SA089166

PATIENT
  Age: 69 Year
  Sex: Male
  Weight: 86 kg

DRUGS (6)
  1. INSULIN GLARGINE [Suspect]
     Indication: TYPE 2 DIABETES MELLITUS
     Dosage: DOSE:26 UNIT(S)
     Route: 058
     Dates: start: 20130220, end: 201308
  2. LANTUS SOLOSTAR [Concomitant]
     Route: 058
  3. ZOCOR [Concomitant]
  4. CORVASAL [Concomitant]
  5. ASPICOT [Concomitant]
  6. PREDICOR [Concomitant]

REACTIONS (1)
  - Lymphoma [Fatal]
